FAERS Safety Report 11849579 (Version 1)
Quarter: 2015Q4

REPORT INFORMATION
  Report Type: Not Available
  Country: PL (occurrence: PL)
  Receive Date: 20151218
  Receipt Date: 20151218
  Transmission Date: 20160305
  Serious: Yes (Other)
  Sender: FDA-Public Use
  Company Number: PL-SYNTHON BV-NL01PV15_40244

PATIENT
  Sex: Male

DRUGS (1)
  1. FOKUSIN [Suspect]
     Active Substance: TAMSULOSIN
     Dosage: UNK
     Route: 048

REACTIONS (4)
  - Dizziness [Unknown]
  - Angioedema [Unknown]
  - Arthralgia [Unknown]
  - Visual impairment [Unknown]
